FAERS Safety Report 7384667 (Version 5)
Quarter: 2012Q4

REPORT INFORMATION
  Report Type: 
  Country: US (occurrence: US)
  Receive Date: 20100512
  Receipt Date: 20120829
  Transmission Date: 20130627
  Serious: Yes (Hospitalization, Other)
  Sender: FDA-Public Use
  Company Number: US-BAYER-201021857NA

PATIENT
  Age: 16 Year
  Sex: Female
  Weight: 60.32 kg

DRUGS (8)
  1. YASMIN [Suspect]
     Indication: MENORRHAGIA
     Dosage: UNK UNK, QD
     Route: 048
     Dates: start: 20070223, end: 20070523
  2. METADATE CD [Concomitant]
     Indication: ATTENTION DEFICIT/HYPERACTIVITY DISORDER
     Dosage: UNK
     Dates: start: 1997, end: 2007
  3. AMPICILLIN [Concomitant]
     Dosage: UNK
     Dates: start: 20070619
  4. CLINDAMYCIN [Concomitant]
     Dosage: UNK
     Dates: start: 20070619
  5. GENTAMYCIN [Concomitant]
     Dosage: UNK
     Dates: start: 20070619
  6. LOESTRIN [Concomitant]
     Indication: DYSMENORRHOEA
  7. LOESTRIN [Concomitant]
     Indication: CONTRACEPTION
  8. ANALGESICS [Concomitant]

REACTIONS (10)
  - Deep vein thrombosis [Unknown]
  - Pulmonary embolism [None]
  - Pulmonary infarction [None]
  - Vena cava thrombosis [None]
  - Thrombophlebitis superficial [None]
  - Pelvic venous thrombosis [None]
  - Chest pain [None]
  - Pain in extremity [Unknown]
  - Oedema peripheral [Unknown]
  - Pain [None]
